FAERS Safety Report 26135173 (Version 1)
Quarter: 2025Q4

REPORT INFORMATION
  Report Type: Report from Study
  Country: US (occurrence: US)
  Receive Date: 20251209
  Receipt Date: 20251209
  Transmission Date: 20260117
  Serious: No
  Sender: ACADIA PHARMACEUTICALS
  Company Number: US-ACADIA PHARMACEUTICALS INC.-ACA-2025-PIM-012928

PATIENT
  Age: 75 Year
  Sex: Female

DRUGS (11)
  1. NUPLAZID [Suspect]
     Active Substance: PIMAVANSERIN TARTRATE
     Indication: Hallucination
     Dosage: 34 MILLIGRAM, QD
     Route: 048
     Dates: start: 20251008, end: 20251203
  2. NUPLAZID [Suspect]
     Active Substance: PIMAVANSERIN TARTRATE
     Indication: Parkinson^s disease
  3. BUSPIRONE [Concomitant]
     Active Substance: BUSPIRONE HYDROCHLORIDE
  4. TRAZODONE [Concomitant]
     Active Substance: TRAZODONE HYDROCHLORIDE
  5. ESCITALOPRAM [Concomitant]
     Active Substance: ESCITALOPRAM OXALATE
  6. ELIQUIS [Concomitant]
     Active Substance: APIXABAN
  7. DILTIAZEM [Concomitant]
     Active Substance: DILTIAZEM
  8. HYDROCODONE [Concomitant]
     Active Substance: HYDROCODONE
  9. LISINOPRIL [Concomitant]
     Active Substance: LISINOPRIL
  10. LINZESS [Concomitant]
     Active Substance: LINACLOTIDE
  11. CARBIDOPA LEVODOPA [Concomitant]
     Active Substance: CARBIDOPA\LEVODOPA

REACTIONS (2)
  - Drug ineffective [Unknown]
  - Muscular weakness [Unknown]

NARRATIVE: CASE EVENT DATE: 20251203
